FAERS Safety Report 10230993 (Version 2)
Quarter: 2014Q2

REPORT INFORMATION
  Report Type: Report from Study
  Country: CA (occurrence: CA)
  Receive Date: 20140611
  Receipt Date: 20140611
  Transmission Date: 20141212
  Serious: Yes (Other)
  Sender: FDA-Public Use
  Company Number: CA-INCYTE CORPORATION-2014IN000117

PATIENT
  Sex: Female

DRUGS (4)
  1. JAKAVI [Suspect]
     Dosage: UNK UNK, UNK
     Route: 065
  2. DESFERAL [Suspect]
     Indication: IRON OVERLOAD
     Dosage: UNK UNK, QMO
     Route: 058
  3. DESFERAL [Suspect]
     Dosage: UNK UKN, TWICE A MONTH
     Route: 065
     Dates: end: 20140527
  4. SYNTHROID [Concomitant]
     Dosage: UNK UKN, UNK

REACTIONS (1)
  - Blood iron increased [Unknown]
